FAERS Safety Report 4783943-9 (Version None)
Quarter: 2005Q3

REPORT INFORMATION
  Report Type: 
  Country: None (occurrence: None)
  Receive Date: 20050927
  Receipt Date: 20050728
  Transmission Date: 20060218
  Serious: No
  Sender: FDA-Public Use
  Company Number: USA0507104059

PATIENT
  Age: 43 Year
  Sex: Male
  Weight: 85 kg

DRUGS (5)
  1. STRATTERA [Suspect]
     Indication: ATTENTION DEFICIT/HYPERACTIVITY DISORDER
     Dates: start: 20050726
  2. WELLBUTRIN [Concomitant]
  3. NIASPAN [Concomitant]
  4. VYTORIN [Concomitant]
  5. CELEXA [Concomitant]

REACTIONS (2)
  - DYSURIA [None]
  - URINARY HESITATION [None]
